FAERS Safety Report 6174051-3 (Version None)
Quarter: 2009Q2

REPORT INFORMATION
  Report Type: 
  Country: None (occurrence: None)
  Receive Date: 20090430
  Receipt Date: 20080304
  Transmission Date: 20091009
  Serious: No
  Sender: FDA-Public Use
  Company Number: US-ASTRAZENECA-2008UW04423

PATIENT
  Age: 71 Year
  Sex: Male
  Weight: 86.2 kg

DRUGS (5)
  1. NEXIUM [Suspect]
     Indication: DYSPEPSIA
     Route: 048
  2. NEXIUM [Suspect]
     Route: 048
  3. LISINOPRIL [Concomitant]
     Route: 048
  4. VALIUM [Concomitant]
  5. HYOSCYAMINE [Concomitant]

REACTIONS (1)
  - MUSCLE SPASMS [None]
